FAERS Safety Report 4388374-1 (Version None)
Quarter: 2004Q3

REPORT INFORMATION
  Report Type: 
  Country: None (occurrence: None)
  Receive Date: 20040701
  Receipt Date: 20030725
  Transmission Date: 20050211
  Serious: Yes (Hospitalization)
  Sender: FDA-Public Use
  Company Number: SE-BRISTOL-MYERS SQUIBB COMPANY-12337572

PATIENT
  Age: 61 Year
  Sex: Female

DRUGS (6)
  1. KENACORT-T INJ 10 MG/ML [Suspect]
     Indication: MYALGIA
     Dosage: DOSAGE: 2ML X 10 MG/ML
     Dates: start: 20030710, end: 20030710
  2. KENACORT-T INJ 10 MG/ML [Suspect]
     Indication: SWELLING
     Dosage: DOSAGE: 2ML X 10 MG/ML
     Dates: start: 20030710, end: 20030710
  3. ALVEDON [Concomitant]
  4. GLYBURIDE [Concomitant]
  5. CARDIZEM [Concomitant]
  6. SELOKEN ZOC [Concomitant]

REACTIONS (1)
  - SOFT TISSUE INFECTION [None]
